FAERS Safety Report 12563158 (Version 2)
Quarter: 2016Q3

REPORT INFORMATION
  Report Type: Spontaneous
  Country: US (occurrence: US)
  Receive Date: 20160715
  Receipt Date: 20160729
  Transmission Date: 20161109
  Serious: No
  Sender: FDA-Public Use
  Company Number: US-PFIZER INC-2016305881

PATIENT
  Age: 65 Year
  Sex: Male
  Weight: 108.8 kg

DRUGS (39)
  1. ZEMPLAR [Concomitant]
     Active Substance: PARICALCITOL
     Indication: RENAL DISORDER
     Dosage: 1 UG, 4 X A WEEK
  2. PRALUENT [Concomitant]
     Active Substance: ALIROCUMAB
     Dosage: 150 MG, UNK (1 INJ EVERY 14 DAYS)
     Dates: start: 20160119
  3. PRALUENT [Concomitant]
     Active Substance: ALIROCUMAB
     Dosage: 150 MG, UNK (1 INJ EVERY 14 DAYS)
     Dates: start: 20160301
  4. LYRICA [Suspect]
     Active Substance: PREGABALIN
     Dosage: 75 MG, 3X/DAY
     Route: 048
  5. PRALUENT [Concomitant]
     Active Substance: ALIROCUMAB
     Indication: BLOOD CHOLESTEROL ABNORMAL
     Dosage: 150 MG, 1 INJ EVERY 14 DAYS
     Dates: start: 20150929
  6. PRALUENT [Concomitant]
     Active Substance: ALIROCUMAB
     Dosage: 150 MG, UNK (1 INJ EVERY 14 DAYS)
     Dates: start: 20151027
  7. PRALUENT [Concomitant]
     Active Substance: ALIROCUMAB
     Dosage: 150 MG, UNK (1 INJ EVERY 14 DAYS)
     Dates: start: 20160329
  8. PRALUENT [Concomitant]
     Active Substance: ALIROCUMAB
     Dosage: 150 MG, UNK (1 INJ EVERY 14 DAYS)
     Dates: start: 20160426
  9. PRALUENT [Concomitant]
     Active Substance: ALIROCUMAB
     Dosage: 150 MG, UNK (1 INJ EVERY 14 DAYS)
     Dates: start: 20160524
  10. FLU SHOT [Concomitant]
     Active Substance: INFLUENZA VIRUS VACCINE
     Dosage: UNK
     Dates: start: 20151021
  11. PENTOXIFYLLINE. [Concomitant]
     Active Substance: PENTOXIFYLLINE
     Indication: PAIN
     Dosage: 400 MG, 2X/DAY
     Route: 048
     Dates: start: 2000
  12. HUMALOG [Concomitant]
     Active Substance: INSULIN LISPRO
     Indication: DIABETES MELLITUS
     Dosage: UNK
  13. NITROSTAT [Concomitant]
     Active Substance: NITROGLYCERIN
     Dosage: 5MG UP TO 15 MG, AS NEEDED
  14. PRALUENT [Concomitant]
     Active Substance: ALIROCUMAB
     Dosage: 150 MG, UNK (1 INJ EVERY 14 DAYS)
     Dates: start: 20160202
  15. PRALUENT [Concomitant]
     Active Substance: ALIROCUMAB
     Dosage: 150 MG, UNK (1 INJ EVERY 14 DAYS)
     Dates: start: 20160216
  16. VITAMIN D [Concomitant]
     Active Substance: CHOLECALCIFEROL
     Indication: VITAMIN D ABNORMAL
     Dosage: 7000 MG, DAILY
     Dates: start: 20150820
  17. AVAPRO [Concomitant]
     Active Substance: IRBESARTAN
     Indication: RENAL DISORDER
  18. NITROSTAT [Concomitant]
     Active Substance: NITROGLYCERIN
     Dosage: 10 MG, UNK
     Dates: start: 20140605
  19. NITROSTAT [Concomitant]
     Active Substance: NITROGLYCERIN
     Dosage: TWICE NIGHT
     Dates: start: 20151107
  20. PRALUENT [Concomitant]
     Active Substance: ALIROCUMAB
     Dosage: 150 MG, UNK (1 INJ EVERY 14 DAYS)
     Dates: start: 20151013
  21. PRALUENT [Concomitant]
     Active Substance: ALIROCUMAB
     Dosage: 150 MG, UNK (1 INJ EVERY 14 DAYS)
     Dates: start: 20151208
  22. PRALUENT [Concomitant]
     Active Substance: ALIROCUMAB
     Dosage: 150 MG, UNK (1 INJ EVERY 14 DAYS)
     Dates: start: 20160412
  23. IMDUR [Concomitant]
     Active Substance: ISOSORBIDE MONONITRATE
     Indication: CARDIAC DISORDER
     Dosage: 60 MG, 1X/DAY
     Route: 048
     Dates: start: 200901
  24. AVAPRO [Concomitant]
     Active Substance: IRBESARTAN
     Indication: CARDIAC DISORDER
     Dosage: 150 MG, 1X/DAY
     Dates: start: 2009
  25. AVAPRO [Concomitant]
     Active Substance: IRBESARTAN
     Indication: BLOOD PRESSURE ABNORMAL
  26. NITROSTAT [Concomitant]
     Active Substance: NITROGLYCERIN
     Dosage: UNK
     Dates: start: 201510
  27. PRALUENT [Concomitant]
     Active Substance: ALIROCUMAB
     Dosage: 150 MG, UNK (1 INJ EVERY 14 DAYS)
     Dates: start: 20151124
  28. ASPIRIN. [Concomitant]
     Active Substance: ASPIRIN
     Indication: CARDIAC DISORDER
     Dosage: 81 MG, 2X/DAY
     Route: 048
     Dates: start: 2009
  29. PLAVIX [Concomitant]
     Active Substance: CLOPIDOGREL BISULFATE
     Indication: CARDIAC DISORDER
     Dosage: 75 MG, 1X/DAY
     Route: 048
     Dates: start: 200901
  30. PRALUENT [Concomitant]
     Active Substance: ALIROCUMAB
     Dosage: 150 MG, UNK (1 INJ EVERY 14 DAYS)
     Dates: start: 20151110
  31. PRALUENT [Concomitant]
     Active Substance: ALIROCUMAB
     Dosage: 150 MG, UNK (1 INJ EVERY 14 DAYS)
     Dates: start: 20151222
  32. PRALUENT [Concomitant]
     Active Substance: ALIROCUMAB
     Dosage: 150 MG, UNK (1 INJ EVERY 14 DAYS)
     Dates: start: 20160607
  33. LYRICA [Suspect]
     Active Substance: PREGABALIN
     Indication: NEUROPATHY PERIPHERAL
     Dosage: 50 MG, 2X/DAY
     Route: 048
  34. TOPROL XL [Concomitant]
     Active Substance: METOPROLOL SUCCINATE
     Indication: CARDIAC DISORDER
     Dosage: 50 MG, 1X/DAY
     Route: 048
     Dates: start: 200901
  35. VITAMIN B12 [Concomitant]
     Active Substance: CYANOCOBALAMIN
     Indication: VITAMIN B COMPLEX DEFICIENCY
     Dosage: 1000 MG, 1X/DAY
     Dates: start: 20150910
  36. PRALUENT [Concomitant]
     Active Substance: ALIROCUMAB
     Dosage: 150 MG, UNK (1 INJ EVERY 14 DAYS)
     Dates: start: 20160105
  37. PRALUENT [Concomitant]
     Active Substance: ALIROCUMAB
     Dosage: 150 MG, UNK (1 INJ EVERY 14 DAYS)
     Dates: start: 20160315
  38. PRALUENT [Concomitant]
     Active Substance: ALIROCUMAB
     Dosage: 150 MG, UNK (1 INJ EVERY 14 DAYS)
     Dates: start: 20160510
  39. LANTUS [Concomitant]
     Active Substance: INSULIN GLARGINE
     Dosage: UNK

REACTIONS (2)
  - Pain [Not Recovered/Not Resolved]
  - Drug dose omission [Not Recovered/Not Resolved]
